FAERS Safety Report 10039826 (Version 2)
Quarter: 2014Q1

REPORT INFORMATION
  Report Type: Spontaneous
  Country: JP (occurrence: JP)
  Receive Date: 20140326
  Receipt Date: 20140331
  Transmission Date: 20141002
  Serious: Yes (Other)
  Sender: FDA-Public Use
  Company Number: JP-JNJFOC-20140307827

PATIENT
  Age: 79 Year
  Sex: Female

DRUGS (6)
  1. DUROTEP MT [Suspect]
     Indication: CANCER PAIN
     Route: 062
     Dates: start: 20140303
  2. DUROTEP MT [Suspect]
     Indication: CANCER PAIN
     Route: 062
     Dates: start: 201403, end: 20140308
  3. MS CONTIN [Concomitant]
     Indication: LUNG CANCER METASTATIC
     Route: 048
     Dates: end: 20140302
  4. MS CONTIN [Concomitant]
     Indication: LUNG CANCER METASTATIC
     Route: 048
     Dates: start: 20140303
  5. FENTANYL CITRATE [Concomitant]
     Indication: CANCER PAIN
     Route: 060
     Dates: start: 20140220, end: 20140302
  6. FENTANYL CITRATE [Concomitant]
     Indication: CANCER PAIN
     Dosage: RESCUE DOSE
     Route: 060
     Dates: start: 201403, end: 20140308

REACTIONS (4)
  - Drug eruption [Recovered/Resolved]
  - Nausea [Recovered/Resolved]
  - Somnolence [Recovered/Resolved]
  - Application site reaction [Recovered/Resolved]
